FAERS Safety Report 21140917 (Version 2)
Quarter: 2022Q3

REPORT INFORMATION
  Report Type: Report from Study
  Country: US (occurrence: US)
  Receive Date: 20220728
  Receipt Date: 20220921
  Transmission Date: 20221027
  Serious: Yes (Other)
  Sender: FDA-Public Use
  Company Number: US-BRISTOL-MYERS SQUIBB COMPANY-2022-077035

PATIENT
  Age: 65 Year
  Sex: Female
  Weight: 72.57 kg

DRUGS (1)
  1. REVLIMID [Suspect]
     Active Substance: LENALIDOMIDE
     Indication: Plasma cell myeloma
     Dosage: A3690A: EXP.DATE: 30-JUN-2024
     Route: 048
     Dates: start: 201808

REACTIONS (3)
  - Blood calcium decreased [Unknown]
  - Sinusitis [Unknown]
  - Tooth disorder [Unknown]

NARRATIVE: CASE EVENT DATE: 20220801
